FAERS Safety Report 6946313-0 (Version None)
Quarter: 2010Q3

REPORT INFORMATION
  Report Type: 
  Country: None (occurrence: None)
  Receive Date: 20100824
  Receipt Date: 20100730
  Transmission Date: 20110219
  Serious: Yes (Hospitalization)
  Sender: FDA-Public Use
  Company Number: ADR-UNK-065

PATIENT
  Age: 14 Year
  Sex: Female

DRUGS (4)
  1. ZONISAMIDE [Suspect]
     Indication: EPILEPSY
  2. RANCEPINE, CARBAMAZEPINE [Suspect]
  3. VALPROIC ACID [Concomitant]
  4. PHENOBARBITAL [Concomitant]

REACTIONS (12)
  - ABDOMINAL DISTENSION [None]
  - ALOPECIA [None]
  - CONSTIPATION [None]
  - CYSTITIS [None]
  - HIRSUTISM [None]
  - NEUTROPHIL PERCENTAGE INCREASED [None]
  - OVARIAN GRANULOSA-THECA CELL TUMOUR [None]
  - PANCREATITIS [None]
  - PERITONITIS SCLEROSING [None]
  - PYREXIA [None]
  - RESPIRATORY DISTRESS [None]
  - VOMITING [None]
